FAERS Safety Report 7214140-5 (Version None)
Quarter: 2010Q4

REPORT INFORMATION
  Report Type: 
  Country: None (occurrence: None)
  Receive Date: 20101126
  Receipt Date: 20100929
  Transmission Date: 20110411
  Serious: Yes (Other)
  Sender: FDA-Public Use
  Company Number: WAES 1009USA05572

PATIENT
  Age: 68 Year
  Sex: Female

DRUGS (2)
  1. FOSAMAX [Suspect]
     Dates: start: 19960301
  2. ALENDRONATE SODIUM [Suspect]
     Dates: start: 20080201, end: 20081001

REACTIONS (2)
  - FEMUR FRACTURE [None]
  - PAIN IN EXTREMITY [None]
